FAERS Safety Report 10861344 (Version 1)
Quarter: 2015Q1

REPORT INFORMATION
  Report Type: Report from Study
  Country: IT (occurrence: IT)
  Receive Date: 20150224
  Receipt Date: 20150224
  Transmission Date: 20150721
  Serious: Yes (Other)
  Sender: FDA-Public Use
  Company Number: IT-TEVA-541702ACC

PATIENT
  Age: 68 Year
  Sex: Female
  Weight: 70 kg

DRUGS (3)
  1. RIBAVIRIN. [Suspect]
     Active Substance: RIBAVIRIN
     Indication: CHRONIC HEPATITIS C
     Dosage: 1000 MILLIGRAM DAILY; 1000 MG DAILY
     Route: 048
     Dates: start: 20131015, end: 20131115
  2. PEGASYS [Interacting]
     Active Substance: PEGINTERFERON ALFA-2A
     Indication: PRODUCT USED FOR UNKNOWN INDICATION
     Dosage: 180 UG WEEKLY
     Route: 058
     Dates: start: 20131025, end: 20131115
  3. TELAPREVIR [Interacting]
     Active Substance: TELAPREVIR
     Indication: CHRONIC HEPATITIS C
     Dosage: 2250 MILLIGRAM DAILY; 2250 MG DAILY
     Route: 048
     Dates: start: 20131015, end: 20131115

REACTIONS (3)
  - Leukopenia [Recovered/Resolved]
  - Drug interaction [Recovered/Resolved]
  - Neutropenia [Recovered/Resolved]

NARRATIVE: CASE EVENT DATE: 20131031
